FAERS Safety Report 4974996-3 (Version None)
Quarter: 2006Q2

REPORT INFORMATION
  Report Type: 
  Country: None (occurrence: None)
  Receive Date: 20060414
  Receipt Date: 20060414
  Transmission Date: 20061013
  Serious: Yes (Life-Threatening, Hospitalization)
  Sender: FDA-Public Use
  Company Number: None

PATIENT
  Sex: Male

DRUGS (1)
  1. PENTOBARBITAL CAP [Suspect]
     Indication: CONVULSION
     Dates: start: 20060207, end: 20060207

REACTIONS (1)
  - ILEUS [None]
